FAERS Safety Report 5187693-9 (Version None)
Quarter: 2006Q4

REPORT INFORMATION
  Report Type: 
  Country: None (occurrence: None)
  Receive Date: 20061221
  Receipt Date: 20061109
  Transmission Date: 20070319
  Serious: Yes (Other)
  Sender: FDA-Public Use
  Company Number: PHEH2006US13891

PATIENT
  Age: 66 Week
  Sex: Female

DRUGS (2)
  1. TRILEPTAL [Suspect]
     Indication: ANXIETY
     Dosage: 1/2 TABLET OF 300 MG, HS
     Route: 048
     Dates: start: 20061103, end: 20061104
  2. KLONOPIN [Concomitant]
     Dosage: 1/2 TABLET OF 0.5 MG, QD
     Route: 048

REACTIONS (6)
  - ANXIETY [None]
  - HEADACHE [None]
  - HEART RATE IRREGULAR [None]
  - PALPITATIONS [None]
  - TACHYCARDIA [None]
  - TREMOR [None]
